FAERS Safety Report 20221026 (Version 1)
Quarter: 2021Q4

REPORT INFORMATION
  Report Type: Spontaneous
  Country: US (occurrence: None)
  Receive Date: 20211223
  Receipt Date: 20211223
  Transmission Date: 20220303
  Serious: No
  Sender: FDA-Public Use
  Company Number: 2021A854164

PATIENT

DRUGS (1)
  1. CALQUENCE [Suspect]
     Active Substance: ACALABRUTINIB
     Indication: Chronic lymphocytic leukaemia
     Route: 048

REACTIONS (7)
  - Dizziness [Unknown]
  - Palpitations [Recovering/Resolving]
  - Abdominal distension [Recovered/Resolved]
  - Blood pressure decreased [Unknown]
  - Skin tightness [Unknown]
  - Muscular weakness [Unknown]
  - Weight increased [Unknown]
